FAERS Safety Report 23756830 (Version 2)
Quarter: 2024Q2

REPORT INFORMATION
  Report Type: Spontaneous
  Country: US (occurrence: US)
  Receive Date: 20240418
  Receipt Date: 20240619
  Transmission Date: 20240716
  Serious: Yes (Other)
  Sender: FDA-Public Use
  Company Number: US-FreseniusKabi-FK202406066

PATIENT
  Age: 4 Year
  Sex: Female
  Weight: 20.5 kg

DRUGS (2)
  1. DIPRIVAN [Suspect]
     Active Substance: ISOPROPYL ALCOHOL\PROPOFOL
     Indication: Sedative therapy
     Dosage: FORM: INJECTABLE EMULSION?PDF-11203000?DIPRIVAN 500 MG PER 50 ML VIALS?PROPOFOL (DIPRIVAN) 10 MG/ML
     Dates: start: 20240401
  2. DIPRIVAN [Suspect]
     Active Substance: ISOPROPYL ALCOHOL\PROPOFOL
     Dosage: IV BOLUS: 50 MG AT 0735; 10 MG AT 0736; 30 MG AT 0744; 20 MG AT 0805?PROPOFOL (DIPRIVAN) 10 MG/ML
     Route: 040
     Dates: start: 20240401

REACTIONS (8)
  - Airway complication of anaesthesia [Recovered/Resolved]
  - Cough [Recovered/Resolved]
  - Oxygen saturation decreased [Recovered/Resolved]
  - Retching [Recovered/Resolved]
  - Therapeutic product effect decreased [Unknown]
  - Laryngospasm [Recovered/Resolved]
  - Bronchospasm [Recovered/Resolved]
  - Use of accessory respiratory muscles [Recovered/Resolved]

NARRATIVE: CASE EVENT DATE: 20240401
